FAERS Safety Report 12920349 (Version 1)
Quarter: 2016Q4

REPORT INFORMATION
  Report Type: Spontaneous
  Country: US (occurrence: US)
  Receive Date: 20161108
  Receipt Date: 20161108
  Transmission Date: 20170207
  Serious: No
  Sender: FDA-Public Use
  Company Number: US-JNJFOC-20161017793

PATIENT
  Age: 5 Year
  Sex: Male

DRUGS (2)
  1. CONCERTA [Suspect]
     Active Substance: METHYLPHENIDATE HYDROCHLORIDE
     Indication: ATTENTION DEFICIT/HYPERACTIVITY DISORDER
     Route: 048
  2. CONCERTA [Suspect]
     Active Substance: METHYLPHENIDATE HYDROCHLORIDE
     Indication: IMPULSIVE BEHAVIOUR
     Route: 048

REACTIONS (6)
  - Social problem [Recovering/Resolving]
  - Flat affect [Unknown]
  - Aggression [Recovering/Resolving]
  - Irritability [Unknown]
  - Weight gain poor [Unknown]
  - Decreased appetite [Unknown]

NARRATIVE: CASE EVENT DATE: 200407
